FAERS Safety Report 7776982-7 (Version None)
Quarter: 2011Q3

REPORT INFORMATION
  Report Type: 
  Country: None (occurrence: None)
  Receive Date: 20110923
  Receipt Date: 20110923
  Transmission Date: 20111222
  Serious: Yes (Other)
  Sender: FDA-Public Use
  Company Number: None

PATIENT
  Age: 89 Year
  Sex: Male

DRUGS (11)
  1. REVLIMID [Suspect]
     Indication: MULTIPLE MYELOMA
     Dosage: REVLIMID 15MG EVERY OTHER DAY ORAL
     Route: 048
     Dates: start: 20110501, end: 20110701
  2. DEXAMETHASONE [Concomitant]
  3. FLUTICASONE PROPIONATE [Concomitant]
  4. PROCRIT [Concomitant]
  5. ASPIRIN [Concomitant]
  6. GEMFIBROZIL [Concomitant]
  7. OMEPRAZOLE [Concomitant]
  8. NIFEDIPINE [Concomitant]
  9. LOSARTAN POTASSIUM [Concomitant]
  10. INSULIN [Concomitant]
  11. CALCIUM + VITD [Concomitant]

REACTIONS (1)
  - PNEUMONIA [None]
